FAERS Safety Report 7073463-3 (Version None)
Quarter: 2010Q4

REPORT INFORMATION
  Report Type: 
  Country: None (occurrence: None)
  Receive Date: 20101029
  Receipt Date: 20100628
  Transmission Date: 20110411
  Serious: No
  Sender: FDA-Public Use
  Company Number: A0866555A

PATIENT
  Age: 82 Year
  Sex: Male

DRUGS (13)
  1. ADVAIR DISKUS 100/50 [Suspect]
     Indication: WHEEZING
     Dosage: 1PUFF TWICE PER DAY
     Route: 055
     Dates: start: 20080601
  2. LOTREL [Suspect]
     Indication: PRODUCT USED FOR UNKNOWN INDICATION
  3. FLOMAX [Concomitant]
  4. PREVACID [Concomitant]
  5. METOPROLOL [Concomitant]
  6. ZOCOR [Concomitant]
  7. TRICOR [Concomitant]
  8. TRAMADOL [Concomitant]
  9. HYDROCHLOROTHIAZIDE [Concomitant]
  10. TRAZOLAN [Concomitant]
  11. INSULIN [Concomitant]
  12. AMLODIPINE BESYLATE AND BENAZEPRIL HCL [Concomitant]
  13. EXFORGE [Concomitant]

REACTIONS (2)
  - COUGH [None]
  - DRY MOUTH [None]
